FAERS Safety Report 10146965 (Version 1)
Quarter: 2014Q2

REPORT INFORMATION
  Report Type: Spontaneous
  Country: US (occurrence: None)
  Receive Date: 20140430
  Receipt Date: 20140430
  Transmission Date: 20141212
  Serious: Yes (Hospitalization)
  Sender: FDA-Public Use
  Company Number: None

PATIENT
  Age: 28 Year
  Sex: Male

DRUGS (7)
  1. HYDROMORPHONE [Suspect]
     Indication: PAIN
     Dosage: 0.4MG, EVERY 2 HOURS, PRN, IV
     Route: 042
     Dates: start: 20130708, end: 20130708
  2. ENOXAPARIN [Concomitant]
  3. KETOROLAC [Concomitant]
  4. MAGNESIUM HYDROXIDE [Concomitant]
  5. MORPHINE [Concomitant]
  6. ONDANSETRON [Concomitant]
  7. POTASSIUM CHLORIDE [Concomitant]

REACTIONS (1)
  - Oxygen saturation decreased [None]
